FAERS Safety Report 8790931 (Version 1)
Quarter: 2012Q4

REPORT INFORMATION
  Report Type: Spontaneous
  Country: US (occurrence: None)
  Receive Date: 20120913
  Receipt Date: 20120913
  Transmission Date: 20130627
  Serious: Yes (Other)
  Sender: FDA-Public Use
  Company Number: None

PATIENT
  Age: 63 Year
  Sex: Female

DRUGS (1)
  1. ERTAPENEM [Suspect]
     Indication: OSTEOMYELITIS OF JAW
     Dosage: 1gm q24h IV Drip
     Route: 041
     Dates: start: 20120825, end: 20120908

REACTIONS (5)
  - Lethargy [None]
  - Somnolence [None]
  - Dysstasia [None]
  - Dyspnoea [None]
  - Nervous system disorder [None]
